FAERS Safety Report 8760473 (Version 2)
Quarter: 2012Q4

REPORT INFORMATION
  Report Type: 
  Country: FR (occurrence: FR)
  Receive Date: 20120830
  Receipt Date: 20120910
  Transmission Date: 20130627
  Serious: Yes (Hospitalization, Disabling, Other)
  Sender: FDA-Public Use
  Company Number: PHHY2012FR073953

PATIENT
  Age: 77 None
  Sex: Female
  Weight: 69 kg

DRUGS (3)
  1. TASIGNA [Suspect]
     Indication: CHRONIC MYELOID LEUKAEMIA
     Dosage: 600 mg/day
     Route: 048
     Dates: start: 200905, end: 20120725
  2. METFORMIN [Suspect]
     Dosage: 1400 mg/day
  3. CRESTOR [Suspect]
     Dosage: 5 mg/day

REACTIONS (9)
  - Temporal arteritis [Unknown]
  - Blindness unilateral [Unknown]
  - Visual acuity reduced [Unknown]
  - Arterial disorder [Unknown]
  - Arterial occlusive disease [Unknown]
  - Retinal artery occlusion [Unknown]
  - Optic neuritis [Unknown]
  - Type 2 diabetes mellitus [Unknown]
  - Pain in extremity [Unknown]
